FAERS Safety Report 15541046 (Version 1)
Quarter: 2018Q4

REPORT INFORMATION
  Report Type: Report from Study
  Country: CA (occurrence: CA)
  Receive Date: 20181023
  Receipt Date: 20181023
  Transmission Date: 20190205
  Serious: Yes (Hospitalization)
  Sender: FDA-Public Use
  Company Number: PHHY2016CA003330

PATIENT
  Age: 73 Year
  Sex: Male

DRUGS (7)
  1. JAKAVI [Suspect]
     Active Substance: RUXOLITINIB
     Indication: MYELOFIBROSIS
     Dosage: 10 MG, BID
     Route: 048
     Dates: start: 201504
  2. EXJADE [Suspect]
     Active Substance: DEFERASIROX
     Indication: MYELOFIBROSIS
     Dosage: 250 MG, QD
     Route: 048
     Dates: start: 20151102
  3. EXJADE [Suspect]
     Active Substance: DEFERASIROX
     Dosage: 125 MG, QD
     Route: 048
     Dates: start: 201603
  4. JADENU [Suspect]
     Active Substance: DEFERASIROX
     Indication: IRON OVERLOAD
     Dosage: 180 MG, QD
     Route: 048
  5. JADENU [Suspect]
     Active Substance: DEFERASIROX
     Dosage: 360 MG, QD
     Route: 048
     Dates: start: 201608
  6. JADENU [Suspect]
     Active Substance: DEFERASIROX
     Dosage: 450 MG, BID (360 MG+90MG BID))
     Route: 048
     Dates: start: 201608, end: 20170415
  7. JADENU [Suspect]
     Active Substance: DEFERASIROX
     Dosage: 360 MG, BID
     Route: 048

REACTIONS (13)
  - Dysphonia [Unknown]
  - Blood creatinine increased [Unknown]
  - Drug ineffective [Unknown]
  - Feeding disorder [Recovered/Resolved]
  - Bronchitis [Unknown]
  - Haemoglobin decreased [Unknown]
  - Urinary tract infection [Unknown]
  - Nausea [Unknown]
  - Abdominal distension [Recovered/Resolved]
  - Abdominal discomfort [Unknown]
  - Constipation [Unknown]
  - Serum ferritin increased [Unknown]
  - Inappropriate schedule of product administration [Unknown]

NARRATIVE: CASE EVENT DATE: 201603
